FAERS Safety Report 6544913-3 (Version None)
Quarter: 2010Q1

REPORT INFORMATION
  Report Type: 
  Country: None (occurrence: None)
  Receive Date: 20100115
  Receipt Date: 20091230
  Transmission Date: 20100710
  Serious: Yes (Death)
  Sender: FDA-Public Use
  Company Number: DSA_42339_2010

PATIENT
  Age: 91 Year
  Sex: Female

DRUGS (8)
  1. DILTIAZEM HYDROCHLORIDE [Suspect]
     Indication: DRUG USE FOR UNKNOWN INDICATION
     Dosage: (10.8 GRAM AT ONE TIME ORAL)
     Route: 048
  2. FUROSEMIDE [Concomitant]
  3. LEVOTHYROXINE SODIUM [Concomitant]
  4. DIGOXIN [Concomitant]
  5. ESOMEPRAZOLE [Concomitant]
  6. DOXEPIN HCL [Concomitant]
  7. TEMAZEPAM [Concomitant]
  8. WARFARIN SODIUM [Concomitant]

REACTIONS (14)
  - ACCIDENTAL OVERDOSE [None]
  - ASPIRATION [None]
  - ATRIOVENTRICULAR BLOCK COMPLETE [None]
  - BLOOD PRESSURE DECREASED [None]
  - COLD SWEAT [None]
  - CYANOSIS [None]
  - DEPRESSION [None]
  - HEART RATE DECREASED [None]
  - HYPERGLYCAEMIA [None]
  - INTERNATIONAL NORMALISED RATIO INCREASED [None]
  - METABOLIC ACIDOSIS [None]
  - PERIPHERAL COLDNESS [None]
  - PULMONARY OEDEMA [None]
  - RESUSCITATION [None]
